FAERS Safety Report 7558374-9 (Version None)
Quarter: 2011Q2

REPORT INFORMATION
  Report Type: 
  Country: None (occurrence: None)
  Receive Date: 20110620
  Receipt Date: 20110607
  Transmission Date: 20111010
  Serious: Yes (Other)
  Sender: FDA-Public Use
  Company Number: PHHY2011JP08768

PATIENT
  Sex: Female

DRUGS (11)
  1. NEORAL [Suspect]
     Dosage: 220 MG
     Route: 048
     Dates: start: 20090327
  2. NEORAL [Suspect]
     Dosage: 220 MG
     Route: 048
     Dates: start: 20100804, end: 20100930
  3. NEORAL [Suspect]
     Dosage: 140 MG
     Route: 048
     Dates: start: 20081208
  4. NEORAL [Suspect]
     Indication: HEART TRANSPLANT
     Dosage: 200 MG
     Route: 048
     Dates: start: 20080812
  5. CYCLOSPORINE [Suspect]
     Indication: HEART TRANSPLANT
     Dosage: 280 MG
     Route: 048
     Dates: start: 20080722, end: 20080811
  6. NEORAL [Suspect]
     Dosage: 240 MG
     Route: 048
     Dates: start: 20100218
  7. NEORAL [Suspect]
     Dosage: 200 MG
     Route: 048
     Dates: start: 20100609
  8. PREDNISOLONE [Suspect]
     Indication: HEART TRANSPLANT
     Dosage: 10 MG
     Route: 048
     Dates: start: 20080722
  9. CELLCEPT [Suspect]
     Indication: HEART TRANSPLANT
     Dosage: 500 MG
     Route: 048
     Dates: start: 20080722
  10. NEORAL [Suspect]
     Dosage: 200 MG
     Route: 048
     Dates: start: 20090205
  11. NEORAL [Suspect]
     Dosage: 220 MG
     Route: 048
     Dates: start: 20100414

REACTIONS (3)
  - HEPATIC NEOPLASM [None]
  - FOCAL NODULAR HYPERPLASIA [None]
  - HEART TRANSPLANT REJECTION [None]
